FAERS Safety Report 19870034 (Version 2)
Quarter: 2021Q3

REPORT INFORMATION
  Report Type: Spontaneous
  Country: US (occurrence: US)
  Receive Date: 20210923
  Receipt Date: 20210930
  Transmission Date: 20211014
  Serious: No
  Sender: FDA-Public Use
  Company Number: US-TAKEDA-2021TUS056716

PATIENT
  Age: 63 Year
  Sex: Male

DRUGS (4)
  1. REVLIMID [Suspect]
     Active Substance: LENALIDOMIDE
     Dosage: 25 MILLIGRAM, QD
     Dates: start: 202101
  2. REVLIMID [Suspect]
     Active Substance: LENALIDOMIDE
     Dosage: 10 MILLIGRAM, QD
     Route: 048
     Dates: start: 202108
  3. NINLARO [Suspect]
     Active Substance: IXAZOMIB CITRATE
     Indication: PRODUCT USED FOR UNKNOWN INDICATION
     Dosage: 4 MILLIGRAM
     Route: 048
     Dates: start: 202108, end: 202108
  4. REVLIMID [Suspect]
     Active Substance: LENALIDOMIDE
     Indication: PLASMA CELL MYELOMA
     Dosage: 25 MILLIGRAM, QD
     Route: 048
     Dates: start: 202011

REACTIONS (1)
  - Rash [Unknown]

NARRATIVE: CASE EVENT DATE: 20210813
